FAERS Safety Report 17478343 (Version 3)
Quarter: 2020Q1

REPORT INFORMATION
  Report Type: Report from Study
  Country: IE (occurrence: IE)
  Receive Date: 20200228
  Receipt Date: 20200327
  Transmission Date: 20200409
  Serious: Yes (Other)
  Sender: FDA-Public Use
  Company Number: IE-JNJFOC-20191209206

PATIENT
  Sex: Male

DRUGS (7)
  1. YASMINELLE [Concomitant]
     Active Substance: DROSPIRENONE
     Indication: PRODUCT USED FOR UNKNOWN INDICATION
     Route: 050
  2. CITALOPRAM [Concomitant]
     Active Substance: CITALOPRAM HYDROBROMIDE
     Indication: PRODUCT USED FOR UNKNOWN INDICATION
     Route: 050
  3. XOLAIR [Concomitant]
     Active Substance: OMALIZUMAB
     Indication: PRODUCT USED FOR UNKNOWN INDICATION
     Route: 050
  4. DRYNOL [Concomitant]
     Indication: PRODUCT USED FOR UNKNOWN INDICATION
     Route: 050
  5. RANITIDINE. [Concomitant]
     Active Substance: RANITIDINE
     Indication: PRODUCT USED FOR UNKNOWN INDICATION
     Route: 050
  6. STELARA [Suspect]
     Active Substance: USTEKINUMAB
     Indication: PSORIASIS
     Route: 058
     Dates: start: 20181214
  7. STELARA [Suspect]
     Active Substance: USTEKINUMAB
     Route: 058

REACTIONS (3)
  - Respiratory tract infection [Not Recovered/Not Resolved]
  - Off label use [Unknown]
  - Product use issue [Unknown]
